FAERS Safety Report 4729313-0 (Version None)
Quarter: 2005Q3

REPORT INFORMATION
  Report Type: 
  Country: None (occurrence: None)
  Receive Date: 20050729
  Receipt Date: 20050720
  Transmission Date: 20060218
  Serious: Yes (Other)
  Sender: FDA-Public Use
  Company Number: DE-BRISTOL-MYERS SQUIBB COMPANY-13050281

PATIENT
  Sex: Female

DRUGS (2)
  1. VOLON-A INJ 40 MG/ML [Suspect]
     Indication: MACULAR OEDEMA
     Route: 031
  2. VOLON-A INJ 40 MG/ML [Suspect]
     Indication: CATARACT OPERATION
     Route: 031

REACTIONS (1)
  - EYELID OEDEMA [None]
